FAERS Safety Report 8371515-9 (Version None)
Quarter: 2012Q2

REPORT INFORMATION
  Report Type: 
  Country: None (occurrence: None)
  Receive Date: 20120518
  Receipt Date: 20120509
  Transmission Date: 20120825
  Serious: Yes (Hospitalization)
  Sender: FDA-Public Use
  Company Number: JP-AMGEN-JPNSP2012030186

PATIENT
  Age: 69 Year
  Sex: Female

DRUGS (1)
  1. RANMARK [Suspect]
     Indication: LUNG NEOPLASM MALIGNANT
     Dosage: 120 MG, UNK
     Route: 058
     Dates: start: 20120501

REACTIONS (1)
  - CEREBRAL INFARCTION [None]
